FAERS Safety Report 6854762-4 (Version None)
Quarter: 2010Q3

REPORT INFORMATION
  Report Type: 
  Country: None (occurrence: None)
  Receive Date: 20100717
  Receipt Date: 20080110
  Transmission Date: 20110219
  Serious: No
  Sender: FDA-Public Use
  Company Number: US-PFIZER INC-2008004456

PATIENT
  Sex: Female
  Weight: 75 kg

DRUGS (6)
  1. CHANTIX [Suspect]
     Indication: SMOKING CESSATION THERAPY
     Dates: start: 20080103
  2. ATENOLOL [Concomitant]
     Indication: TACHYCARDIA
  3. ASPIRIN [Concomitant]
     Indication: BLOOD CHOLESTEROL INCREASED
  4. MULTI-VITAMINS [Concomitant]
     Indication: BLOOD CHOLESTEROL INCREASED
  5. MINERALS NOS [Concomitant]
     Indication: BLOOD CHOLESTEROL INCREASED
  6. ZOCOR [Concomitant]
     Indication: BLOOD CHOLESTEROL INCREASED

REACTIONS (3)
  - ABDOMINAL DISCOMFORT [None]
  - HEADACHE [None]
  - NAUSEA [None]
